FAERS Safety Report 9094506 (Version 1)
Quarter: 2013Q1

REPORT INFORMATION
  Report Type: Spontaneous
  Country: CA (occurrence: CA)
  Receive Date: 20130219
  Receipt Date: 20130219
  Transmission Date: 20140127
  Serious: Yes (Death)
  Sender: FDA-Public Use
  Company Number: CA-B.I. PHARMACEUTICALS,INC./RIDGEFIELD-2013-CN-00244CN

PATIENT
  Age: 91 Year
  Sex: Female

DRUGS (1)
  1. PRADAX [Suspect]
     Dosage: 220 MG

REACTIONS (1)
  - Death [Fatal]
